FAERS Safety Report 9160269 (Version 2)
Quarter: 2013Q2

REPORT INFORMATION
  Report Type: Spontaneous
  Country: FR (occurrence: FR)
  Receive Date: 20130313
  Receipt Date: 20130403
  Transmission Date: 20140414
  Serious: Yes (Disabling, Other)
  Sender: FDA-Public Use
  Company Number: FR-ROCHE-1201103

PATIENT
  Sex: Male
  Weight: 70 kg

DRUGS (5)
  1. ZELBORAF [Suspect]
     Indication: METASTATIC MALIGNANT MELANOMA
     Route: 048
     Dates: start: 20121220
  2. KEPPRA [Concomitant]
     Indication: EPILEPSY
     Route: 048
  3. AMLOR [Concomitant]
     Route: 048
  4. CORTANCYL [Concomitant]
     Route: 048
  5. DIFFERINE [Concomitant]
     Route: 061

REACTIONS (7)
  - Skin toxicity [Not Recovered/Not Resolved]
  - Fatigue [Not Recovered/Not Resolved]
  - Skin papilloma [Not Recovered/Not Resolved]
  - Hyperaesthesia [Recovered/Resolved]
  - Weight decreased [Not Recovered/Not Resolved]
  - Nausea [Not Recovered/Not Resolved]
  - Rash pustular [Not Recovered/Not Resolved]
